FAERS Safety Report 4831812-8 (Version None)
Quarter: 2005Q4

REPORT INFORMATION
  Report Type: 
  Country: None (occurrence: None)
  Receive Date: 20051118
  Receipt Date: 20051107
  Transmission Date: 20060501
  Serious: Yes (Death)
  Sender: FDA-Public Use
  Company Number: US-NOVOPROD-248373

PATIENT

DRUGS (1)
  1. NOVOSEVEN [Suspect]
     Indication: ILL-DEFINED DISORDER
     Dosage: UNKNOWN
     Route: 042

REACTIONS (2)
  - DEATH [None]
  - SURGERY [None]
